FAERS Safety Report 4341131-4 (Version None)
Quarter: 2004Q2

REPORT INFORMATION
  Report Type: 
  Country: None (occurrence: None)
  Receive Date: 20040413
  Receipt Date: 20040330
  Transmission Date: 20050107
  Serious: Yes (Hospitalization)
  Sender: FDA-Public Use
  Company Number: 2004-BP-02513NB

PATIENT
  Age: 53 Year
  Sex: Male

DRUGS (1)
  1. PERSANTINE [Suspect]
     Indication: SCAN MYOCARDIAL PERFUSION
     Dosage: 10 MG IV
     Route: 042

REACTIONS (2)
  - CARDIAC ARREST [None]
  - CARDIAC PROCEDURE COMPLICATION [None]
